FAERS Safety Report 15564318 (Version 2)
Quarter: 2018Q4

REPORT INFORMATION
  Report Type: Report from Study
  Country: FR (occurrence: FR)
  Receive Date: 20181030
  Receipt Date: 20181116
  Transmission Date: 20190205
  Serious: Yes (Other)
  Sender: FDA-Public Use
  Company Number: FR-TAKEDA-2018TUS030963

PATIENT
  Sex: Male

DRUGS (6)
  1. BRIGATINIB [Suspect]
     Active Substance: BRIGATINIB
     Indication: PRODUCT USED FOR UNKNOWN INDICATION
     Dosage: 90 MG, QD
     Route: 065
     Dates: start: 20160811
  2. HYDROCORTISONE. [Concomitant]
     Active Substance: HYDROCORTISONE
     Indication: PITUITARY INFARCTION
     Dosage: UNK
     Dates: start: 20180905
  3. LANSOPRAZOLE. [Concomitant]
     Active Substance: LANSOPRAZOLE
     Dosage: 15 MG, QD
     Route: 065
     Dates: start: 201601
  4. BARACLUDE [Concomitant]
     Active Substance: ENTECAVIR
     Indication: HEPATITIS B
     Dosage: 0.5 MG, UNK
     Dates: start: 201601
  5. KEPPRA [Concomitant]
     Active Substance: LEVETIRACETAM
     Indication: EPILEPSY
     Dosage: UNK
     Route: 065
  6. AMLOR [Concomitant]
     Active Substance: AMLODIPINE BESYLATE
     Indication: HYPERTENSION
     Dosage: 5 MG, UNK
     Route: 065
     Dates: start: 201501

REACTIONS (5)
  - Seizure [Unknown]
  - Therapeutic response decreased [Unknown]
  - Blood creatine phosphokinase increased [Unknown]
  - Blood pressure increased [Unknown]
  - Creatinine renal clearance abnormal [Unknown]

NARRATIVE: CASE EVENT DATE: 201806
